FAERS Safety Report 7965446-3 (Version None)
Quarter: 2011Q4

REPORT INFORMATION
  Report Type: 
  Country: None (occurrence: None)
  Receive Date: 20111208
  Receipt Date: 20111128
  Transmission Date: 20120403
  Serious: Yes (Hospitalization)
  Sender: FDA-Public Use
  Company Number: JP-AMGEN-JPNCT2011065265

PATIENT
  Age: 63 Year
  Sex: Female
  Weight: 53 kg

DRUGS (12)
  1. ROMIPLOSTIM - KHK [Suspect]
     Dosage: 5 MUG/KG, QWK
     Route: 058
     Dates: start: 20110819, end: 20110819
  2. ROMIPLOSTIM - KHK [Suspect]
     Dosage: 5 MUG/KG, QWK
     Route: 058
     Dates: start: 20110826, end: 20110826
  3. ROMIPLOSTIM - KHK [Suspect]
     Dosage: 7 MUG/KG, QWK
     Route: 058
     Dates: start: 20110902, end: 20110902
  4. FERROUS CITRATE [Concomitant]
     Indication: IRON DEFICIENCY ANAEMIA
     Dosage: UNCERTAINTY
     Route: 048
  5. ROMIPLOSTIM - KHK [Suspect]
     Indication: IDIOPATHIC THROMBOCYTOPENIC PURPURA
     Dosage: 3 MUG/KG, QWK
     Route: 058
     Dates: start: 20110812, end: 20110812
  6. TRANEXAMIC ACID [Concomitant]
     Dosage: 750 MG, UNK
     Route: 048
  7. MUCOSTA [Concomitant]
     Indication: PROPHYLAXIS
     Dosage: UNCERTAINTY
     Route: 048
  8. JUVELA N [Concomitant]
     Indication: HYPERLIPIDAEMIA
     Dosage: UNCERTAINTY
     Route: 048
  9. PREDNISOLONE [Concomitant]
     Indication: IDIOPATHIC THROMBOCYTOPENIC PURPURA
     Dosage: 15 MG, UNK
     Route: 048
  10. ALFAROL [Concomitant]
     Indication: OSTEOPOROSIS
     Dosage: UNK
     Route: 048
  11. GLORIAMIN [Concomitant]
     Indication: PROPHYLAXIS
     Dosage: UNCERTAINTY
     Route: 048
  12. ADONA [Concomitant]
     Dosage: 60 MG, UNK
     Route: 048

REACTIONS (1)
  - HAEMORRHAGIC DIATHESIS [None]
